FAERS Safety Report 10234300 (Version 2)
Quarter: 2014Q2

REPORT INFORMATION
  Report Type: Spontaneous
  Country: MX (occurrence: MX)
  Receive Date: 20140610
  Receipt Date: 20140610
  Transmission Date: 20141212
  Serious: Yes (Hospitalization, Other)
  Sender: FDA-Public Use
  Company Number: MX-ELI_LILLY_AND_COMPANY-MX201310003878

PATIENT
  Age: 37 Year
  Sex: Female

DRUGS (6)
  1. HUMALOG 25% LISPRO, 75% NPL [Suspect]
     Indication: GESTATIONAL DIABETES
     Dosage: 16 U, EACH MORNING
     Route: 065
     Dates: start: 20131009
  2. HUMALOG 25% LISPRO, 75% NPL [Suspect]
     Dosage: 12 U, EACH EVENING
     Route: 065
     Dates: start: 20131009
  3. METHYLDOPA [Concomitant]
     Indication: HYPERTENSION
  4. NIFEDIPINE [Concomitant]
     Indication: HYPERTENSION
  5. FOLIC ACID [Concomitant]
  6. FERROUS SULFATE [Concomitant]

REACTIONS (7)
  - Hypertension [Unknown]
  - Hypertension [Unknown]
  - Pulmonary oedema [Unknown]
  - Weight increased [Unknown]
  - Swelling [Unknown]
  - Maternal exposure during pregnancy [Recovered/Resolved]
  - Exposure during breast feeding [Unknown]
